FAERS Safety Report 21491007 (Version 5)
Quarter: 2023Q4

REPORT INFORMATION
  Report Type: Spontaneous
  Country: DE (occurrence: DE)
  Receive Date: 20221021
  Receipt Date: 20231128
  Transmission Date: 20240110
  Serious: Yes (Death, Other)
  Sender: FDA-Public Use
  Company Number: None

PATIENT
  Age: 79 Year
  Sex: Female
  Weight: 62 kg

DRUGS (10)
  1. CEFUROXIME AXETIL [Suspect]
     Active Substance: CEFUROXIME AXETIL
     Indication: Infection
     Dosage: 3 DOSAGE FORM
     Route: 065
     Dates: start: 19950124, end: 19950131
  2. ASPIRIN [Suspect]
     Active Substance: ASPIRIN
     Indication: Product used for unknown indication
     Dosage: UNK (TABLET)
     Route: 065
     Dates: start: 19950116, end: 19950124
  3. ACETYLCYSTEINE [Suspect]
     Active Substance: ACETYLCYSTEINE
     Indication: Cough
     Dosage: UNK, (3 DF)
     Route: 065
     Dates: start: 19950119
  4. ALLOPURINOL [Suspect]
     Active Substance: ALLOPURINOL
     Indication: Hyperuricaemia
     Dosage: UNK UNCOATED TABLET
     Route: 065
     Dates: start: 19950126
  5. BUTYLSCOPOLAMINE BROMIDE [Suspect]
     Active Substance: BUTYLSCOPOLAMINE BROMIDE
     Indication: Pain
     Dosage: UNK
     Route: 065
     Dates: start: 19950130, end: 19950130
  6. DIGITOXIN [Suspect]
     Active Substance: DIGITOXIN
     Indication: Cardiac failure
     Dosage: 1 DOSAGE FORM, TABLET
     Route: 065
     Dates: start: 19950124, end: 19950125
  7. MIDAZOLAM HYDROCHLORIDE [Suspect]
     Active Substance: MIDAZOLAM HYDROCHLORIDE
     Indication: Product used for unknown indication
     Dosage: UNK
     Route: 065
     Dates: start: 19950113, end: 19950113
  8. OXAZEPAM [Suspect]
     Active Substance: OXAZEPAM
     Indication: Sleep disorder
     Dosage: UNK
     Route: 065
     Dates: start: 19950121, end: 19950121
  9. FLUNITRAZEPAM [Suspect]
     Active Substance: FLUNITRAZEPAM
     Indication: Product used for unknown indication
     Dosage: UNK
     Route: 065
     Dates: start: 19950113, end: 19950113
  10. TRAMADOL HYDROCHLORIDE [Suspect]
     Active Substance: TRAMADOL HYDROCHLORIDE
     Indication: Pain
     Dosage: UNK, ORAL DROPS
     Route: 065
     Dates: start: 19950126, end: 19950126

REACTIONS (4)
  - Toxic epidermal necrolysis [Fatal]
  - Lymphocytosis [Unknown]
  - Body temperature increased [Unknown]
  - Constipation [Unknown]

NARRATIVE: CASE EVENT DATE: 19950130
